FAERS Safety Report 6219178-2 (Version None)
Quarter: 2009Q2

REPORT INFORMATION
  Report Type: 
  Country: None (occurrence: None)
  Receive Date: 20090605
  Receipt Date: 20090605
  Transmission Date: 20091009
  Serious: Yes (Hospitalization)
  Sender: FDA-Public Use
  Company Number: None

PATIENT
  Sex: Male

DRUGS (1)
  1. SIMVASTATIN [Suspect]
     Indication: BLOOD CHOLESTEROL
     Dosage: TAKE HALF TABLET 40MG- AT BEDTIME PO
     Route: 048
     Dates: start: 20010101, end: 20090305

REACTIONS (5)
  - ERECTILE DYSFUNCTION [None]
  - MUSCULAR WEAKNESS [None]
  - MYALGIA [None]
  - WALKING AID USER [None]
  - WHEELCHAIR USER [None]
